FAERS Safety Report 18730053 (Version 2)
Quarter: 2021Q1

REPORT INFORMATION
  Report Type: Spontaneous
  Country: US (occurrence: US)
  Receive Date: 20210112
  Receipt Date: 20210112
  Transmission Date: 20210419
  Serious: Yes (Other)
  Sender: FDA-Public Use
  Company Number: US-PFIZER INC-2021010332

PATIENT
  Age: 48 Year
  Sex: Male
  Weight: 82.3 kg

DRUGS (6)
  1. AMINOPHYLLINE. [Interacting]
     Active Substance: AMINOPHYLLINE
     Dosage: 300 MG
     Route: 040
  2. MORPHINE SULFATE. [Suspect]
     Active Substance: MORPHINE SULFATE
     Indication: SEDATION
     Dosage: UNK
  3. AMINOPHYLLINE. [Interacting]
     Active Substance: AMINOPHYLLINE
     Dosage: 30 MG (30 MG/HR) INFUSION
     Route: 042
  4. PANCURONIUM BROMIDE. [Interacting]
     Active Substance: PANCURONIUM BROMIDE
     Dosage: 5 MG (APPROXIMATELY 1.5 HRS APART)
     Route: 042
  5. PANCURONIUM BROMIDE. [Interacting]
     Active Substance: PANCURONIUM BROMIDE
     Dosage: 3 MG(APPROXIMATELY 1.5 HRS APART)
     Route: 042
  6. DIAZEPAM. [Suspect]
     Active Substance: DIAZEPAM
     Indication: SEDATIVE THERAPY
     Dosage: UNK

REACTIONS (3)
  - Drug interaction [Unknown]
  - Off label use [Unknown]
  - Drug ineffective [Unknown]
